FAERS Safety Report 16343215 (Version 1)
Quarter: 2019Q2

REPORT INFORMATION
  Report Type: Spontaneous
  Country: US (occurrence: US)
  Receive Date: 20190521
  Receipt Date: 20190521
  Transmission Date: 20190711
  Serious: Yes (Hospitalization)
  Sender: FDA-Public Use
  Company Number: None

PATIENT
  Age: 28 Year
  Sex: Female
  Weight: 60.75 kg

DRUGS (1)
  1. NEXPLANON [Suspect]
     Active Substance: ETONOGESTREL
     Indication: CONTRACEPTION

REACTIONS (11)
  - Thrombosis [None]
  - Neoplasm [None]
  - Tumour pain [None]
  - Neoplasm progression [None]
  - Suicidal ideation [None]
  - Feeling abnormal [None]
  - Quality of life decreased [None]
  - Tic [None]
  - Anxiety [None]
  - Pain [None]
  - Bipolar I disorder [None]

NARRATIVE: CASE EVENT DATE: 20190214
